FAERS Safety Report 7389404-5 (Version None)
Quarter: 2011Q2

REPORT INFORMATION
  Report Type: 
  Country: None (occurrence: None)
  Receive Date: 20110401
  Receipt Date: 20110323
  Transmission Date: 20111010
  Serious: Yes (Other)
  Sender: FDA-Public Use
  Company Number: PHHY2011FR25157

PATIENT
  Sex: Female

DRUGS (1)
  1. TRAMADOL SANDOZ [Suspect]
     Indication: PAIN

REACTIONS (2)
  - RESTLESS LEGS SYNDROME [None]
  - PAIN [None]
